FAERS Safety Report 10375390 (Version 2)
Quarter: 2014Q3

REPORT INFORMATION
  Report Type: Spontaneous
  Country: IT (occurrence: IT)
  Receive Date: 20140811
  Receipt Date: 20140821
  Transmission Date: 20150326
  Serious: Yes (Death, Hospitalization, Other)
  Sender: FDA-Public Use
  Company Number: IT-CELGENEUS-083-50794-14075046

PATIENT
  Age: 64 Year
  Sex: Male

DRUGS (4)
  1. VIDAZA [Suspect]
     Active Substance: AZACITIDINE
     Indication: ACUTE MYELOID LEUKAEMIA
     Route: 058
     Dates: start: 201111, end: 201205
  2. RED BLOOD CELLS [Concomitant]
     Active Substance: HUMAN RED BLOOD CELL
     Indication: TRANSFUSION
     Route: 041
  3. PLATELETS [Concomitant]
     Active Substance: HUMAN PLATELET, ALLOGENIC
     Indication: TRANSFUSION
     Route: 041
  4. HYDROXYUREA. [Concomitant]
     Active Substance: HYDROXYUREA
     Indication: CYTOREDUCTIVE SURGERY
     Route: 065

REACTIONS (7)
  - Death [Fatal]
  - Cholecystitis acute [Unknown]
  - VIth nerve paralysis [Unknown]
  - Central nervous system leukaemia [Unknown]
  - Strabismus [Unknown]
  - Diplopia [Unknown]
  - No therapeutic response [Unknown]
